FAERS Safety Report 8415555-X (Version None)
Quarter: 2012Q2

REPORT INFORMATION
  Report Type: 
  Country: None (occurrence: None)
  Receive Date: 20120323
  Receipt Date: 20111222
  Transmission Date: 20120825
  Serious: Yes (Other)
  Sender: FDA-Public Use
  Company Number: 163-21880-11123196

PATIENT
  Age: 68 Year
  Sex: Male
  Weight: 220 kg

DRUGS (7)
  1. MV (MV) (UNKNOWN) [Concomitant]
  2. K SUPPLEMENT (POTASSIUM)(UNKNOWN [Concomitant]
  3. CALCIUM (CALCIUM)(UNKNOWN) [Concomitant]
  4. LENALIDOMIDE [Suspect]
     Indication: MULTIPLE MYELOMA
     Dosage: 25 MG, DAILY, PO
     Route: 048
     Dates: start: 20100101, end: 20111222
  5. DIOVAN [Concomitant]
  6. BABY ASPIRIN (ACETYLSALICYLIC ACID)(UNKNOWN) [Concomitant]
  7. SIMVASTATIN [Concomitant]

REACTIONS (1)
  - INTERSTITIAL LUNG DISEASE [None]
